FAERS Safety Report 18972061 (Version 1)
Quarter: 2021Q1

REPORT INFORMATION
  Report Type: Spontaneous
  Country: US (occurrence: US)
  Receive Date: 20210303
  Receipt Date: 20210303
  Transmission Date: 20210420
  Serious: Yes (Death, Hospitalization)
  Sender: FDA-Public Use
  Company Number: None

PATIENT
  Age: 54 Year
  Sex: Male

DRUGS (1)
  1. REVLIMID [Suspect]
     Active Substance: LENALIDOMIDE
     Indication: PLASMA CELL MYELOMA
     Route: 048
     Dates: start: 20201211, end: 20210121

REACTIONS (4)
  - Disease progression [None]
  - Hypotension [None]
  - COVID-19 [None]
  - White blood cell count decreased [None]

NARRATIVE: CASE EVENT DATE: 20210219
